FAERS Safety Report 14092549 (Version 3)
Quarter: 2018Q2

REPORT INFORMATION
  Report Type: Report from Study
  Country: US (occurrence: US)
  Receive Date: 20171016
  Receipt Date: 20180622
  Transmission Date: 20180711
  Serious: Yes (Other)
  Sender: FDA-Public Use
  Company Number: US-JNJFOC-20171012766

PATIENT
  Age: 76 Year
  Sex: Female

DRUGS (20)
  1. ACETAMINOPHEN. [Concomitant]
     Active Substance: ACETAMINOPHEN
     Indication: PROPHYLAXIS
     Dosage: ONE TIME INTERVENTION??RECEIVED ANOTHER DOSE ON 16-MAY-2017
     Route: 048
     Dates: start: 20170502
  2. METHOTREXATE. [Concomitant]
     Active Substance: METHOTREXATE
     Indication: RHEUMATOID ARTHRITIS
     Route: 048
     Dates: start: 20100901, end: 20170901
  3. REMICADE [Suspect]
     Active Substance: INFLIXIMAB
     Indication: RHEUMATOID ARTHRITIS
     Dosage: RECEIVED ON 28-NOV-2017, 23-JAN-2018, 20-MAR-2018 AND 10-MAY-2018
     Route: 042
     Dates: start: 20180320, end: 20180320
  4. SOLU-MEDROL [Concomitant]
     Active Substance: METHYLPREDNISOLONE SODIUM SUCCINATE
     Indication: PROPHYLAXIS
     Dosage: ONE TIME INTERVENTION
     Route: 042
     Dates: start: 20170502
  5. REMICADE [Suspect]
     Active Substance: INFLIXIMAB
     Indication: RHEUMATOID ARTHRITIS
     Route: 042
     Dates: start: 20170502, end: 20170502
  6. BENADRYL [Concomitant]
     Active Substance: DIPHENHYDRAMINE HYDROCHLORIDE
     Indication: PROPHYLAXIS
     Dosage: ONE TIME INTERVENTION??RECEIVED ANOTHER DOSE ON 16-MAY-2017
     Route: 042
     Dates: start: 20170516
  7. REMICADE [Suspect]
     Active Substance: INFLIXIMAB
     Indication: RHEUMATOID ARTHRITIS
     Route: 042
     Dates: start: 20170516, end: 20170516
  8. BENADRYL [Concomitant]
     Active Substance: DIPHENHYDRAMINE HYDROCHLORIDE
     Indication: PROPHYLAXIS
     Dosage: ONE TIME INTERVENTION??RECEIVED ANOTHER DOSE ON 16-MAY-2017
     Route: 042
     Dates: start: 20170502
  9. ACETAMINOPHEN. [Concomitant]
     Active Substance: ACETAMINOPHEN
     Indication: PROPHYLAXIS
     Dosage: ONE TIME INTERVENTION??RECEIVED ANOTHER DOSE ON 16-MAY-2017
     Route: 048
     Dates: start: 20170516
  10. REMICADE [Suspect]
     Active Substance: INFLIXIMAB
     Indication: RHEUMATOID ARTHRITIS
     Route: 042
     Dates: start: 20170808, end: 20170808
  11. REMICADE [Suspect]
     Active Substance: INFLIXIMAB
     Indication: RHEUMATOID ARTHRITIS
     Dosage: RECEIVED ON 28-NOV-2017, 23-JAN-2018, 20-MAR-2018 AND 10-MAY-2018
     Route: 042
     Dates: start: 20180123, end: 20180123
  12. REMICADE [Suspect]
     Active Substance: INFLIXIMAB
     Indication: RHEUMATOID ARTHRITIS
     Dosage: RECEIVED ON 28-NOV-2017, 23-JAN-2018, 20-MAR-2018 AND 10-MAY-2018
     Route: 042
     Dates: start: 20180510, end: 20180510
  13. METHOTREXATE. [Concomitant]
     Active Substance: METHOTREXATE
     Indication: RHEUMATOID ARTHRITIS
     Route: 048
     Dates: start: 20170901
  14. REMICADE [Suspect]
     Active Substance: INFLIXIMAB
     Indication: RHEUMATOID ARTHRITIS
     Dosage: RECEIVED ON 28-NOV-2017, 23-JAN-2018, 20-MAR-2018 AND 10-MAY-2018
     Route: 042
     Dates: start: 20171128, end: 20171128
  15. HYDROXYCHLOROQUINE [Concomitant]
     Active Substance: HYDROXYCHLOROQUINE
     Indication: RHEUMATOID ARTHRITIS
     Route: 048
     Dates: start: 20100901
  16. REMICADE [Suspect]
     Active Substance: INFLIXIMAB
     Indication: RHEUMATOID ARTHRITIS
     Dosage: RECEIVED ON 28-NOV-2017, 23-JAN-2018, 20-MAR-2018 AND 10-MAY-2018
     Route: 042
     Dates: start: 20171003, end: 20171003
  17. REMICADE [Suspect]
     Active Substance: INFLIXIMAB
     Indication: RHEUMATOID ARTHRITIS
     Route: 042
     Dates: start: 20170613, end: 20170613
  18. SOLU-MEDROL [Concomitant]
     Active Substance: METHYLPREDNISOLONE SODIUM SUCCINATE
     Indication: PROPHYLAXIS
     Dosage: ONE TIME INTERVENTION
     Route: 042
     Dates: start: 20170516
  19. HYDROCORTISONE. [Concomitant]
     Active Substance: HYDROCORTISONE
     Indication: PAIN
     Route: 048
     Dates: start: 20170929, end: 20171004
  20. PREDNISONE. [Concomitant]
     Active Substance: PREDNISONE
     Indication: RHEUMATOID ARTHRITIS
     Route: 048
     Dates: start: 20100901

REACTIONS (1)
  - Malignant melanoma [Recovered/Resolved]

NARRATIVE: CASE EVENT DATE: 20170901
